FAERS Safety Report 5049049-9 (Version None)
Quarter: 2006Q3

REPORT INFORMATION
  Report Type: 
  Country: None (occurrence: None)
  Receive Date: 20060712
  Receipt Date: 20060213
  Transmission Date: 20061208
  Serious: No
  Sender: FDA-Public Use
  Company Number: US-GLAXOSMITHKLINE-A0593479A

PATIENT
  Age: 57 Year
  Sex: Male

DRUGS (4)
  1. IMITREX [Suspect]
     Indication: MIGRAINE
     Dosage: 1TAB AS REQUIRED
     Route: 048
     Dates: start: 20040101
  2. TYLENOL (CAPLET) [Concomitant]
  3. DILANTIN [Concomitant]
  4. PHENOBARBITAL [Concomitant]

REACTIONS (1)
  - BLOOD PRESSURE INCREASED [None]
